FAERS Safety Report 10082789 (Version 2)
Quarter: 2014Q2

REPORT INFORMATION
  Report Type: Other
  Country: US (occurrence: US)
  Receive Date: 20140416
  Receipt Date: 20140425
  Transmission Date: 20141212
  Serious: Yes (Other)
  Sender: FDA-Public Use
  Company Number: US-RB-066145-14

PATIENT
  Age: 40 Year
  Sex: Male

DRUGS (5)
  1. BUPRENORPHINE UNSPECIFIED [Suspect]
     Indication: PRODUCT USED FOR UNKNOWN INDICATION
     Dosage: DOSING DETAILS UNKNOWN
     Route: 065
  2. BUPRENORPHINE/NALOXONE UNSPECIFIED [Suspect]
     Indication: PRODUCT USED FOR UNKNOWN INDICATION
     Dosage: DOSING DETAILS UNKNOWN
     Route: 065
  3. ACETAMINOPHEN [Suspect]
     Indication: PRODUCT USED FOR UNKNOWN INDICATION
     Dosage: DOSING DETAILS UNKNOWN
     Route: 065
  4. METHAMPHETAMINE [Suspect]
     Indication: PRODUCT USED FOR UNKNOWN INDICATION
     Dosage: DOSING DETAILS UNKNOWN
     Route: 065
  5. MARIJUANA [Suspect]
     Indication: PRODUCT USED FOR UNKNOWN INDICATION
     Dosage: DOSING DETAILS UNKNOWN
     Route: 065

REACTIONS (25)
  - Ultrasound liver abnormal [Unknown]
  - Biliary dilatation [Unknown]
  - Treponema test positive [Unknown]
  - Syphilis [Unknown]
  - Cytomegalovirus infection [Unknown]
  - Biopsy liver abnormal [Unknown]
  - Biopsy liver abnormal [Unknown]
  - Drug abuse [Recovered/Resolved]
  - High risk sexual behaviour [Recovered/Resolved]
  - Acute hepatitis B [Recovered/Resolved]
  - Drug-induced liver injury [Recovering/Resolving]
  - Secondary syphilis [Unknown]
  - Hepatitis B [Unknown]
  - Abdominal pain upper [Recovered/Resolved]
  - Jaundice [Unknown]
  - Fatigue [Unknown]
  - Malaise [Unknown]
  - Thermal burn [Unknown]
  - Lymphadenopathy [Recovered/Resolved]
  - Rash papulosquamous [Unknown]
  - Ocular icterus [Unknown]
  - Poor dental condition [Unknown]
  - Palatal disorder [Unknown]
  - Liver tenderness [Unknown]
  - Hepatomegaly [Unknown]
